FAERS Safety Report 19899688 (Version 2)
Quarter: 2021Q4

REPORT INFORMATION
  Report Type: Spontaneous
  Country: FR (occurrence: FR)
  Receive Date: 20210929
  Receipt Date: 20211011
  Transmission Date: 20220303
  Serious: Yes (Hospitalization)
  Sender: FDA-Public Use
  Company Number: FR-SCALL-2021-FR-000202

PATIENT
  Age: 70 Year
  Sex: Male
  Weight: 89 kg

DRUGS (9)
  1. ATACAND [Suspect]
     Active Substance: CANDESARTAN CILEXETIL
     Indication: Hypertension
     Dosage: 16 MG DAILY / 1 DF DAILY
     Route: 048
  2. ESOMEPRAZOLE. [Suspect]
     Active Substance: ESOMEPRAZOLE MAGNESIUM
     Dosage: UNKNOWN DOSE AND FREQUENCY
     Route: 048
     Dates: start: 2013, end: 20210728
  3. MORPHINE [Suspect]
     Active Substance: MORPHINE
     Dosage: 1 DF INT
     Dates: start: 202103, end: 20210828
  4. NOVORAPID [Suspect]
     Active Substance: INSULIN ASPART
     Dosage: UNKNOWN DOSE AND FREQUENCY
     Route: 058
  5. GLIMEPIRIDE [Suspect]
     Active Substance: GLIMEPIRIDE
     Dosage: 4 MG DAILY / 1 DF DAILY
     Route: 048
  6. TOUJEO [Suspect]
     Active Substance: INSULIN GLARGINE
     Dosage: 26 IU DAILY
     Route: 058
  7. CIMETIDINE [Suspect]
     Active Substance: CIMETIDINE
     Dosage: 200 MG UNK / UNK
     Route: 048
  8. METFORMIN HYDROCHLORIDE [Suspect]
     Active Substance: METFORMIN HYDROCHLORIDE
     Dosage: 3000 MG DAILY
     Route: 048
  9. EUTHYROX [Suspect]
     Active Substance: LEVOTHYROXINE SODIUM
     Dosage: 75 UG DAILY / 1 DF DAILY
     Route: 048

REACTIONS (2)
  - Vitamin B12 deficiency [Not Recovered/Not Resolved]
  - Bicytopenia [Not Recovered/Not Resolved]

NARRATIVE: CASE EVENT DATE: 20210514
